FAERS Safety Report 15112819 (Version 2)
Quarter: 2018Q3

REPORT INFORMATION
  Report Type: Spontaneous
  Country: BR (occurrence: BR)
  Receive Date: 20180705
  Receipt Date: 20180727
  Transmission Date: 20181010
  Serious: Yes (Hospitalization)
  Sender: FDA-Public Use
  Company Number: BR-AMGEN-BRASP2018087524

PATIENT
  Age: 61 Year
  Sex: Female
  Weight: 75 kg

DRUGS (10)
  1. FAULDOXO [Concomitant]
     Active Substance: DOXORUBICIN HYDROCHLORIDE
     Indication: BREAST CANCER FEMALE
     Dosage: 103.356 MG, Q3WK
     Route: 042
  2. GENUXAL [Concomitant]
     Active Substance: CYCLOPHOSPHAMIDE
     Indication: BREAST CANCER FEMALE
     Dosage: 1033.56 MG, Q3WK
     Route: 042
  3. LACTULOSE. [Concomitant]
     Active Substance: LACTULOSE
     Dosage: 1 DF, Q8H
  4. TAXOL [Concomitant]
     Active Substance: PACLITAXEL
     Indication: BREAST CANCER FEMALE
     Dosage: UNK UNK, CYCLICAL
  5. IMOSEC [Concomitant]
     Active Substance: LOPERAMIDE
     Dosage: 1 DF, Q8H
  6. OMEPRAZOLE. [Concomitant]
     Active Substance: OMEPRAZOLE
     Dosage: 20 MG, FASTING FOR 10 DAYS
  7. TYLENOL [Concomitant]
     Active Substance: ACETAMINOPHEN
     Dosage: 500 MG, UNK
  8. DEXAMETHASONE. [Concomitant]
     Active Substance: DEXAMETHASONE
     Dosage: 4 MG, EVERY 12 HOURS FOR 2 DAYS
  9. NEULASTIM [Suspect]
     Active Substance: PEGFILGRASTIM
     Indication: PROPHYLAXIS
     Dosage: 6 MG, Q2WK (EVERY 14 DAYS)
     Route: 058
     Dates: start: 20180113, end: 20180310
  10. NYSTATIN. [Concomitant]
     Active Substance: NYSTATIN
     Dosage: 1 MEASURE, RINSE AND SWALLOW 4X DAY
     Route: 048

REACTIONS (2)
  - Impetigo [Recovered/Resolved]
  - Febrile neutropenia [Recovered/Resolved]

NARRATIVE: CASE EVENT DATE: 20180224
